FAERS Safety Report 24392559 (Version 3)
Quarter: 2024Q4

REPORT INFORMATION
  Report Type: Other
  Country: CA (occurrence: CA)
  Receive Date: 20241003
  Receipt Date: 20241119
  Transmission Date: 20250115
  Serious: No
  Sender: TOLMAR
  Company Number: CA-TOLMAR, INC.-24CA052696

PATIENT
  Age: 61 Year
  Sex: Male

DRUGS (2)
  1. ELIGARD [Suspect]
     Active Substance: LEUPROLIDE ACETATE
     Indication: Prostate cancer
     Dosage: 45 MILLIGRAM, Q 6 MONTH
     Route: 058
     Dates: start: 20240917
  2. ELIGARD [Suspect]
     Active Substance: LEUPROLIDE ACETATE
     Dosage: 45 MILLIGRAM, Q 6 MONTH
     Route: 058
     Dates: start: 20240403

REACTIONS (3)
  - Wrong technique in product usage process [Unknown]
  - Product preparation error [Unknown]
  - Needle issue [Unknown]

NARRATIVE: CASE EVENT DATE: 20240917
